FAERS Safety Report 13358846 (Version 1)
Quarter: 2017Q1

REPORT INFORMATION
  Report Type: Spontaneous
  Country: AT (occurrence: AT)
  Receive Date: 20170322
  Receipt Date: 20170322
  Transmission Date: 20170429
  Serious: Yes (Death, Other)
  Sender: FDA-Public Use
  Company Number: AT-BAYER-2017-010428

PATIENT

DRUGS (1)
  1. STIVARGA [Suspect]
     Active Substance: REGORAFENIB
     Indication: HEPATIC CANCER
     Dosage: UNK
     Dates: start: 201601, end: 201602

REACTIONS (4)
  - Hyperbilirubinaemia [Fatal]
  - Hypothyroidism [None]
  - General physical health deterioration [None]
  - Off label use [None]

NARRATIVE: CASE EVENT DATE: 20160304
